FAERS Safety Report 12894024 (Version 1)
Quarter: 2016Q4

REPORT INFORMATION
  Report Type: Report from Study
  Country: IT (occurrence: IT)
  Receive Date: 20161028
  Receipt Date: 20161028
  Transmission Date: 20170207
  Serious: Yes (Hospitalization)
  Sender: FDA-Public Use
  Company Number: IT-TEVA-706753ACC

PATIENT
  Age: 75 Year
  Sex: Female

DRUGS (4)
  1. SERTRALINE [Suspect]
     Active Substance: SERTRALINE HYDROCHLORIDE
     Indication: DRUG ABUSE
     Dosage: TOTAL
     Route: 048
     Dates: start: 20160926, end: 20160926
  2. INSULIN [Suspect]
     Active Substance: INSULIN NOS
     Indication: DRUG ABUSE
     Dosage: 50 IU TOTAL
     Route: 058
     Dates: start: 20160926, end: 20160926
  3. VENLAFAXINE [Suspect]
     Active Substance: VENLAFAXINE HYDROCHLORIDE
     Indication: DRUG ABUSE
     Dosage: TOTAL
     Route: 048
     Dates: start: 20160926, end: 20160926
  4. CYMBALTA [Suspect]
     Active Substance: DULOXETINE HYDROCHLORIDE
     Indication: DRUG ABUSE
     Dosage: TOTAL
     Route: 048
     Dates: start: 20160926, end: 20160926

REACTIONS (3)
  - Drug abuse [Unknown]
  - Intentional self-injury [Unknown]
  - Toxicity to various agents [Unknown]

NARRATIVE: CASE EVENT DATE: 20160926
